FAERS Safety Report 6920626-0 (Version None)
Quarter: 2010Q3

REPORT INFORMATION
  Report Type: 
  Country: None (occurrence: None)
  Receive Date: 20100812
  Receipt Date: 20100801
  Transmission Date: 20110219
  Serious: Yes (Other)
  Sender: FDA-Public Use
  Company Number: US-RB-013333-10

PATIENT
  Age: 85 Year
  Sex: Female

DRUGS (4)
  1. MUCINEX [Suspect]
     Dosage: TOOK 1 TAB DAILY FOR 2 DAYS
     Route: 048
     Dates: start: 20100701
  2. SYNTHROID [Concomitant]
  3. LIPITOR [Concomitant]
  4. AVAPRO [Concomitant]

REACTIONS (1)
  - FAECES DISCOLOURED [None]
